FAERS Safety Report 16867440 (Version 1)
Quarter: 2019Q3

REPORT INFORMATION
  Report Type: Spontaneous
  Country: US (occurrence: US)
  Receive Date: 20190930
  Receipt Date: 20190930
  Transmission Date: 20191005
  Serious: No
  Sender: FDA-Public Use
  Company Number: US-MYLANLABS-2019M1087563

PATIENT
  Age: 81 Year
  Sex: Female

DRUGS (1)
  1. CIDOFOVIR. [Suspect]
     Active Substance: CIDOFOVIR
     Indication: PRODUCT USED FOR UNKNOWN INDICATION
     Dosage: UNK

REACTIONS (3)
  - Condition aggravated [Unknown]
  - Confusional state [Unknown]
  - Dysphagia [Unknown]
